FAERS Safety Report 7919246-0 (Version None)
Quarter: 2011Q4

REPORT INFORMATION
  Report Type: 
  Country: None (occurrence: None)
  Receive Date: 20111114
  Receipt Date: 20111104
  Transmission Date: 20120403
  Serious: Yes (Hospitalization)
  Sender: FDA-Public Use
  Company Number: PIR#400120002

PATIENT
  Age: 7 Year
  Sex: Male

DRUGS (1)
  1. METRONIDAZOLE [Suspect]

REACTIONS (2)
  - ACUTE MYELOID LEUKAEMIA RECURRENT [None]
  - ALANINE AMINOTRANSFERASE INCREASED [None]
